FAERS Safety Report 14577092 (Version 3)
Quarter: 2019Q4

REPORT INFORMATION
  Report Type: Report from Study
  Country: US (occurrence: US)
  Receive Date: 20180227
  Receipt Date: 20191211
  Transmission Date: 20200122
  Serious: Yes (Other)
  Sender: FDA-Public Use
  Company Number: US-NAPPMUNDI-USA-2018-0142809

PATIENT
  Age: 53 Year
  Sex: Female

DRUGS (2)
  1. OXYCODONE HYDROCHLORIDE. [Suspect]
     Active Substance: OXYCODONE HYDROCHLORIDE
     Indication: COMPLEX REGIONAL PAIN SYNDROME
     Dosage: (2X 80 MG) 160 MG, TID
     Route: 048
     Dates: start: 20180126
  2. OXYCODONE HYDROCHLORIDE. [Suspect]
     Active Substance: OXYCODONE HYDROCHLORIDE
     Dosage: UNK
     Route: 048
     Dates: start: 2009

REACTIONS (7)
  - Quality of life decreased [Not Recovered/Not Resolved]
  - Suicidal ideation [Unknown]
  - Homicidal ideation [Unknown]
  - Off label use [Not Recovered/Not Resolved]
  - Product prescribing error [Unknown]
  - Road traffic accident [Unknown]
  - Pain [Not Recovered/Not Resolved]

NARRATIVE: CASE EVENT DATE: 20180126
